FAERS Safety Report 10533468 (Version 2)
Quarter: 2014Q4

REPORT INFORMATION
  Report Type: Spontaneous
  Country: CA (occurrence: CA)
  Receive Date: 20141022
  Receipt Date: 20141222
  Transmission Date: 20150529
  Serious: Yes (Other)
  Sender: FDA-Public Use
  Company Number: CA-AMGEN-CANSP2014080414

PATIENT
  Age: 85 Year
  Sex: Female

DRUGS (5)
  1. RAMIPRIL. [Concomitant]
     Active Substance: RAMIPRIL
     Indication: HYPERTENSION
     Dosage: UNK UNK, QD
     Route: 048
  2. PROLIA [Suspect]
     Active Substance: DENOSUMAB
     Indication: OSTEOPOROSIS POSTMENOPAUSAL
     Dosage: 60 MG, Q6MO
     Route: 058
     Dates: start: 201209, end: 201403
  3. ROSUVASTATIN [Concomitant]
     Active Substance: ROSUVASTATIN
     Indication: DYSLIPIDAEMIA
     Dosage: 5 MG, QD
     Route: 048
  4. AGGRENOX [Concomitant]
     Active Substance: ASPIRIN\DIPYRIDAMOLE
     Indication: TRANSIENT ISCHAEMIC ATTACK
     Dosage: 200/25 MG, BID
     Route: 048
  5. RABEPRAZOLE [Concomitant]
     Active Substance: RABEPRAZOLE
     Indication: DYSPEPSIA
     Dosage: 20 MG, UNK
     Route: 048

REACTIONS (2)
  - Skin lesion [Recovered/Resolved]
  - Squamous cell carcinoma of skin [Recovered/Resolved]

NARRATIVE: CASE EVENT DATE: 201402
